FAERS Safety Report 23309775 (Version 1)
Quarter: 2023Q4

REPORT INFORMATION
  Report Type: Spontaneous
  Country: RU (occurrence: None)
  Receive Date: 20231218
  Receipt Date: 20231218
  Transmission Date: 20240109
  Serious: Yes (Other)
  Sender: FDA-Public Use
  Company Number: 2023A285038

PATIENT
  Sex: Female
  Weight: 32 kg

DRUGS (8)
  1. CRESTOR [Suspect]
     Active Substance: ROSUVASTATIN CALCIUM
     Indication: Hypercholesterolaemia
     Dosage: IN THE EVENING
     Route: 048
  2. CRESTOR [Suspect]
     Active Substance: ROSUVASTATIN CALCIUM
     Indication: Hypercholesterolaemia
     Dosage: ONCE IN THE EVENING
     Route: 048
     Dates: start: 20200408
  3. QUDESAN [Concomitant]
     Dosage: 12 DROPS ORALLY ONCE DAILY
  4. MAGNELIS [Concomitant]
     Dosage: 1 TABLET ORALLY TWICE DAILY
  5. OTRIO [Concomitant]
  6. ELCAR SOLUTION [Concomitant]
  7. VITAMIN D [Concomitant]
     Active Substance: VITAMIN D NOS
  8. OMEGA-3 FATTY ACIDS [Concomitant]
     Active Substance: OMEGA-3 FATTY ACIDS

REACTIONS (2)
  - Cardiovascular disorder [Unknown]
  - Off label use [Unknown]
